FAERS Safety Report 4636826-9 (Version None)
Quarter: 2005Q2

REPORT INFORMATION
  Report Type: 
  Country: None (occurrence: None)
  Receive Date: 20050414
  Receipt Date: 20050405
  Transmission Date: 20051028
  Serious: Yes (Life-Threatening, Hospitalization, Other)
  Sender: FDA-Public Use
  Company Number: 2005-01150

PATIENT
  Age: 45 Year
  Sex: Female

DRUGS (1)
  1. IBUPROFEN [Suspect]
     Dosage: 28 GRAMS OF IBUPROFEN DAILY, ORAL
     Route: 048
     Dates: start: 20050101

REACTIONS (3)
  - HYPOKALAEMIA [None]
  - OVERDOSE [None]
  - RENAL TUBULAR ACIDOSIS [None]
